FAERS Safety Report 24330121 (Version 2)
Quarter: 2024Q3

REPORT INFORMATION
  Report Type: Report from Study
  Country: US (occurrence: US)
  Receive Date: 20240917
  Receipt Date: 20240928
  Transmission Date: 20241017
  Serious: Yes (Hospitalization, Other)
  Sender: ABBVIE
  Company Number: US-ABBVIE-5925455

PATIENT
  Sex: Female
  Weight: 82 kg

DRUGS (1)
  1. HUMIRA [Suspect]
     Active Substance: ADALIMUMAB
     Indication: Crohn^s disease
     Route: 058
     Dates: start: 2017

REACTIONS (7)
  - Asthenia [Recovering/Resolving]
  - Colostomy [Unknown]
  - Therapeutic product effect decreased [Unknown]
  - Dehydration [Unknown]
  - Clostridium difficile infection [Not Recovered/Not Resolved]
  - Ileostomy [Unknown]
  - Surgery [Unknown]

NARRATIVE: CASE EVENT DATE: 20180101
